FAERS Safety Report 11222966 (Version 2)
Quarter: 2015Q3

REPORT INFORMATION
  Report Type: Spontaneous
  Country: SK (occurrence: SK)
  Receive Date: 20150626
  Receipt Date: 20150730
  Transmission Date: 20151125
  Serious: Yes (Other)
  Sender: FDA-Public Use
  Company Number: SK-BAXALTA-2015BAX032896

PATIENT
  Age: 70 Year
  Sex: Male
  Weight: 66 kg

DRUGS (8)
  1. SUBCUVIA [Suspect]
     Active Substance: HUMAN IMMUNOGLOBULIN G
     Indication: PRODUCT USED FOR UNKNOWN INDICATION
     Dosage: 3 VIALS IN ONE SYRINGE, RATE OF 10 ML/HOUR
     Route: 065
     Dates: start: 20150515, end: 20150515
  2. SPIRIVA RESPIMAT [Concomitant]
     Active Substance: TIOTROPIUM BROMIDE
     Indication: PRODUCT USED FOR UNKNOWN INDICATION
     Dosage: REGULARLY
     Route: 065
  3. OMARIT [Concomitant]
     Indication: PRODUCT USED FOR UNKNOWN INDICATION
     Dosage: IRREGULARLY
     Route: 065
  4. SERETIDE [Concomitant]
     Active Substance: FLUTICASONE FUROATE\SALMETEROL XINAFOATE
     Indication: PRODUCT USED FOR UNKNOWN INDICATION
     Dosage: REGULARLY
     Route: 065
  5. DASSELTE [Concomitant]
     Indication: PRODUCT USED FOR UNKNOWN INDICATION
     Dosage: UNK
     Route: 065
  6. MUCOSOLVAN [Concomitant]
     Active Substance: AMBROXOL\CLENBUTEROL
     Indication: PRODUCT USED FOR UNKNOWN INDICATION
     Dosage: UNK
     Route: 065
  7. BERODUAL [Concomitant]
     Active Substance: FENOTEROL HYDROBROMIDE\IPRATROPIUM BROMIDE
     Indication: PRODUCT USED FOR UNKNOWN INDICATION
     Dosage: UNK
     Route: 065
  8. MONTELUKAST [Concomitant]
     Active Substance: MONTELUKAST SODIUM
     Indication: PRODUCT USED FOR UNKNOWN INDICATION
     Dosage: REGULARLY
     Route: 065

REACTIONS (10)
  - Erythema [Recovered/Resolved]
  - Diarrhoea [Unknown]
  - Bronchial secretion retention [Unknown]
  - Blood pressure fluctuation [Unknown]
  - Productive cough [Unknown]
  - Dyspnoea [Unknown]
  - Bronchial obstruction [Unknown]
  - Dyspnoea at rest [Recovered/Resolved]
  - Speech disorder [Unknown]
  - Sputum discoloured [Unknown]

NARRATIVE: CASE EVENT DATE: 20150516
